FAERS Safety Report 10012114 (Version 2)
Quarter: 2014Q2

REPORT INFORMATION
  Report Type: Spontaneous
  Country: US (occurrence: US)
  Receive Date: 20140314
  Receipt Date: 20140430
  Transmission Date: 20141212
  Serious: Yes (Disabling)
  Sender: FDA-Public Use
  Company Number: US-UCBSA-114276

PATIENT
  Age: 60 Year
  Sex: Female

DRUGS (2)
  1. VIMPAT [Suspect]
     Indication: EPILEPSY
     Route: 048
     Dates: start: 2005
  2. NEURONTIN [Concomitant]
     Indication: CONVULSION
     Dosage: SINCE MANY YEARS

REACTIONS (5)
  - Upper limb fracture [Recovered/Resolved]
  - Fall [Recovered/Resolved]
  - Hypoaesthesia [Not Recovered/Not Resolved]
  - Pain [Not Recovered/Not Resolved]
  - Drug level increased [Unknown]
